FAERS Safety Report 21216731 (Version 1)
Quarter: 2022Q3

REPORT INFORMATION
  Report Type: Spontaneous
  Country: US (occurrence: None)
  Receive Date: 20220816
  Receipt Date: 20220816
  Transmission Date: 20221027
  Serious: No
  Sender: FDA-Public Use
  Company Number: US-ROCHE-2888469

PATIENT
  Age: 60 Year
  Sex: Female
  Weight: 103.51 kg

DRUGS (1)
  1. ALECENSA [Suspect]
     Active Substance: ALECTINIB HYDROCHLORIDE
     Indication: Non-small cell lung cancer metastatic
     Dosage: YES
     Route: 048
     Dates: start: 202011

REACTIONS (12)
  - Therapeutic response decreased [Not Recovered/Not Resolved]
  - Metastases to bone [Not Recovered/Not Resolved]
  - Lymphadenopathy [Not Recovered/Not Resolved]
  - Blood alkaline phosphatase increased [Not Recovered/Not Resolved]
  - Blood lactate dehydrogenase increased [Not Recovered/Not Resolved]
  - Blood chloride increased [Unknown]
  - Mean cell volume increased [Not Recovered/Not Resolved]
  - Diarrhoea [Unknown]
  - Pain [Not Recovered/Not Resolved]
  - Cough [Not Recovered/Not Resolved]
  - Stress [Not Recovered/Not Resolved]
  - Osteosclerosis [Not Recovered/Not Resolved]

NARRATIVE: CASE EVENT DATE: 20210713
